FAERS Safety Report 6709931-0 (Version None)
Quarter: 2010Q2

REPORT INFORMATION
  Report Type: 
  Country: None (occurrence: None)
  Receive Date: 20100503
  Receipt Date: 20100503
  Transmission Date: 20101027
  Serious: Yes (Other)
  Sender: FDA-Public Use
  Company Number: None

PATIENT
  Age: 7 Year
  Sex: Female
  Weight: 26.7622 kg

DRUGS (8)
  1. CHILDREN'S BENADRYL ALLERGY [Suspect]
     Indication: ECZEMA
     Dosage: 2 TEASPOONS -25 MG- ONCE A DAY AS NEED PO
     Route: 048
     Dates: start: 20100422
  2. CHILDREN'S BENADRYL ALLERGY [Suspect]
     Indication: MULTIPLE ALLERGIES
     Dosage: 2 TEASPOONS -25 MG- ONCE A DAY AS NEED PO
     Route: 048
     Dates: start: 20100422
  3. CHILDREN'S BENADRYL ALLERGY [Suspect]
     Indication: ECZEMA
     Dosage: 2 TEASPOONS -25 MG- ONCE A DAY AS NEED PO
     Route: 048
     Dates: start: 20100423
  4. CHILDREN'S BENADRYL ALLERGY [Suspect]
     Indication: MULTIPLE ALLERGIES
     Dosage: 2 TEASPOONS -25 MG- ONCE A DAY AS NEED PO
     Route: 048
     Dates: start: 20100423
  5. CHILDREN'S BENADRYL ALLERGY [Suspect]
     Indication: ECZEMA
     Dosage: 2 TEASPOONS -25 MG- ONCE A DAY AS NEED PO
     Route: 048
     Dates: start: 20100426
  6. CHILDREN'S BENADRYL ALLERGY [Suspect]
     Indication: MULTIPLE ALLERGIES
     Dosage: 2 TEASPOONS -25 MG- ONCE A DAY AS NEED PO
     Route: 048
     Dates: start: 20100426
  7. CHILDREN'S BENADRYL ALLERGY [Suspect]
     Indication: ECZEMA
     Dosage: 2 TEASPOONS -25 MG- ONCE A DAY AS NEED PO
     Route: 048
     Dates: start: 20100430
  8. CHILDREN'S BENADRYL ALLERGY [Suspect]
     Indication: MULTIPLE ALLERGIES
     Dosage: 2 TEASPOONS -25 MG- ONCE A DAY AS NEED PO
     Route: 048
     Dates: start: 20100430

REACTIONS (7)
  - ABDOMINAL PAIN UPPER [None]
  - CRYING [None]
  - EATING DISORDER [None]
  - FEELING HOT [None]
  - PRODUCT QUALITY ISSUE [None]
  - PYREXIA [None]
  - SOMNOLENCE [None]
